FAERS Safety Report 11990320 (Version 1)
Quarter: 2016Q1

REPORT INFORMATION
  Report Type: Report from Study
  Country: PT (occurrence: PT)
  Receive Date: 20160202
  Receipt Date: 20160202
  Transmission Date: 20160526
  Serious: Yes (Death)
  Sender: FDA-Public Use
  Company Number: PT-PFIZER INC-2016054445

PATIENT
  Age: 60 Year
  Sex: Male

DRUGS (1)
  1. SUTENT [Suspect]
     Active Substance: SUNITINIB MALATE
     Indication: METASTATIC RENAL CELL CARCINOMA
     Dosage: 50 MG, DAILY (2 WEEKS ON / 1 WEEK OFF)
     Route: 048
     Dates: start: 201501

REACTIONS (1)
  - Death [Fatal]

NARRATIVE: CASE EVENT DATE: 20160103
